FAERS Safety Report 7464697-4 (Version None)
Quarter: 2011Q2

REPORT INFORMATION
  Report Type: 
  Country: None (occurrence: None)
  Receive Date: 20110509
  Receipt Date: 20101208
  Transmission Date: 20111010
  Serious: Yes (Hospitalization, Other)
  Sender: FDA-Public Use
  Company Number: US-BAYER-201022911NA

PATIENT
  Age: 29 Year
  Sex: Female
  Weight: 99.773 kg

DRUGS (12)
  1. NEXIUM [Concomitant]
  2. YAZ [Suspect]
     Indication: POLYCYSTIC OVARIES
     Route: 048
     Dates: start: 20080201, end: 20080601
  3. YAZ [Suspect]
     Indication: PREMENSTRUAL SYNDROME
  4. FORTAMET [Concomitant]
     Indication: POLYCYSTIC OVARIES
     Dosage: 1000 MG, QD
     Dates: start: 20080401, end: 20080601
  5. ACIPHEX [Concomitant]
     Indication: GASTROOESOPHAGEAL REFLUX DISEASE
     Dosage: 20 MG, QD
     Dates: start: 20070901, end: 20081001
  6. NASONEX [Concomitant]
     Indication: MULTIPLE ALLERGIES
     Dosage: 50 UNK, UNK
     Dates: start: 20080601
  7. ACETAMINOPHEN [Concomitant]
     Indication: HEADACHE
     Dosage: UNK UNK, PRN
     Dates: start: 20080601
  8. SERTRALINE [Concomitant]
     Indication: DEPRESSION
     Dosage: 150 MG, QD
     Dates: start: 20060601
  9. CLARITIN [Concomitant]
  10. YAZ [Suspect]
  11. NEURONTIN [Concomitant]
     Indication: MIGRAINE
     Dosage: UNK UNK, QD
     Dates: start: 20080601
  12. EXCEDRIN (MIGRAINE) [Concomitant]
     Indication: HEADACHE
     Dosage: UNK
     Dates: start: 20080601

REACTIONS (3)
  - CHOLECYSTITIS CHRONIC [None]
  - DEEP VEIN THROMBOSIS [None]
  - CHOLELITHIASIS [None]
